FAERS Safety Report 5069362-9 (Version None)
Quarter: 2006Q3

REPORT INFORMATION
  Report Type: 
  Country: None (occurrence: None)
  Receive Date: 20060714
  Receipt Date: 20060328
  Transmission Date: 20061208
  Serious: No
  Sender: FDA-Public Use
  Company Number: 2006SP001419

PATIENT
  Age: 43 Year
  Sex: Female

DRUGS (2)
  1. LUNESTA [Suspect]
     Dosage: HS;ORAL
     Route: 048
  2. MULTI-VITAMINS [Concomitant]

REACTIONS (2)
  - DYSGEUSIA [None]
  - INSOMNIA [None]
